FAERS Safety Report 7939958-2 (Version None)
Quarter: 2011Q4

REPORT INFORMATION
  Report Type: 
  Country: None (occurrence: None)
  Receive Date: 20111125
  Receipt Date: 20111115
  Transmission Date: 20120403
  Serious: Yes (Other)
  Sender: FDA-Public Use
  Company Number: PHEH2009US02468

PATIENT
  Sex: Female

DRUGS (28)
  1. CIPROFLOXACIN HYDROCHLORIDE [Concomitant]
  2. CLINDAMYCIN HCL [Concomitant]
     Dosage: 300 MG, Q6H
     Route: 048
     Dates: start: 20080522
  3. MULTIVITAMIN [Concomitant]
     Route: 048
  4. PROCRIT [Concomitant]
  5. CLEOCIN HYDROCHLORIDE [Concomitant]
  6. AREDIA [Suspect]
     Indication: NEOPLASM MALIGNANT
  7. ZOMETA [Suspect]
     Indication: NEOPLASM MALIGNANT
  8. CHLORHEXIDINE GLUCONATE [Concomitant]
  9. ALBUTEROL SULFATE [Concomitant]
     Route: 048
  10. ZOFRAN [Concomitant]
     Dosage: 4 MG, Q4H PRN
  11. SYNTHROID [Concomitant]
     Route: 048
  12. THALOMID [Concomitant]
     Route: 048
  13. PERCOCET [Concomitant]
  14. INFLUENZA VACCINE [Concomitant]
     Dosage: UNK
     Dates: start: 20071001
  15. PNEUMOCOCCAL VACCINE [Concomitant]
  16. LEVAQUIN [Suspect]
  17. ONDANSETRON HYDROCHLORIDE [Concomitant]
  18. VITAMIN D [Concomitant]
     Route: 048
  19. ACETAMINOPHEN [Concomitant]
  20. DECADRON [Concomitant]
     Dosage: 8 MG, UNK
  21. PREVACID [Concomitant]
  22. TENORMIN [Concomitant]
     Dosage: 25 MG, QD
  23. PROTONIX [Concomitant]
     Dosage: 40 MG, UNK
  24. BENADRYL [Concomitant]
  25. GLEEVEC [Suspect]
     Route: 048
  26. THALIDOMIDE [Suspect]
  27. VIACTIV [Concomitant]
     Route: 048
  28. ATENOLOL [Concomitant]
     Route: 048

REACTIONS (74)
  - DISABILITY [None]
  - PLEURAL EFFUSION [None]
  - BIFIDOBACTERIUM TEST POSITIVE [None]
  - RESPIRATORY TRACT OEDEMA [None]
  - RED BLOOD CELL SEDIMENTATION RATE INCREASED [None]
  - EYE MOVEMENT DISORDER [None]
  - CHRONIC SINUSITIS [None]
  - EPISTAXIS [None]
  - FOOT DEFORMITY [None]
  - HYPERTENSION [None]
  - FACIAL BONES FRACTURE [None]
  - DIPLOPIA [None]
  - VERTIGO [None]
  - ANAEMIA [None]
  - WHITE BLOOD CELL COUNT DECREASED [None]
  - CONJUNCTIVITIS [None]
  - ORTHOSTATIC HYPOTENSION [None]
  - ANHEDONIA [None]
  - TOOTHACHE [None]
  - LEUKAEMIA [None]
  - OESOPHAGITIS [None]
  - RESPIRATORY FAILURE [None]
  - OSTEOARTHRITIS [None]
  - MUCOSAL INFLAMMATION [None]
  - NEUTROPENIA [None]
  - CATARACT [None]
  - THROMBOCYTOPENIA [None]
  - RENAL FAILURE [None]
  - BREAST DISCHARGE [None]
  - INGROWING NAIL [None]
  - THYROID CANCER [None]
  - EYE PAIN [None]
  - EYE SWELLING [None]
  - CONJUNCTIVAL OEDEMA [None]
  - PANCYTOPENIA [None]
  - SYNCOPE [None]
  - MENINGIOMA [None]
  - OSTEONECROSIS OF JAW [None]
  - INJURY [None]
  - EATING DISORDER [None]
  - VISUAL IMPAIRMENT [None]
  - CERUMEN IMPACTION [None]
  - STAPHYLOCOCCUS TEST POSITIVE [None]
  - STRABISMUS [None]
  - ARTHRITIS [None]
  - OSTEOPOROSIS [None]
  - SUBDURAL HAEMATOMA [None]
  - DEFORMITY [None]
  - SINUSITIS [None]
  - MULTIPLE MYELOMA [None]
  - OCULAR HYPERAEMIA [None]
  - DIZZINESS [None]
  - MIXED DEAFNESS [None]
  - CELLULITIS ORBITAL [None]
  - BACTEROIDES TEST POSITIVE [None]
  - NEUROPATHY PERIPHERAL [None]
  - HYPOTHYROIDISM [None]
  - OSTEOPENIA [None]
  - POSTMENOPAUSAL HAEMORRHAGE [None]
  - RECTAL HAEMORRHAGE [None]
  - HYPERKERATOSIS [None]
  - NEOPLASM MALIGNANT [None]
  - BLOOD CREATININE INCREASED [None]
  - BREAST CANCER [None]
  - TENDONITIS [None]
  - PERIPHERAL VASCULAR DISORDER [None]
  - ONYCHOLYSIS [None]
  - DIARRHOEA [None]
  - PAIN [None]
  - ANXIETY [None]
  - OEDEMA PERIPHERAL [None]
  - UPPER RESPIRATORY TRACT INFECTION [None]
  - ONYCHOMYCOSIS [None]
  - HYPERLIPIDAEMIA [None]
